FAERS Safety Report 20534072 (Version 1)
Quarter: 2022Q1

REPORT INFORMATION
  Report Type: Spontaneous
  Country: CA (occurrence: None)
  Receive Date: 20220301
  Receipt Date: 20220301
  Transmission Date: 20220424
  Serious: Yes (Other)
  Sender: FDA-Public Use
  Company Number: CA-ROCHE-3030743

PATIENT
  Sex: Male
  Weight: 81.720 kg

DRUGS (3)
  1. OCREVUS [Suspect]
     Active Substance: OCRELIZUMAB
     Indication: Primary progressive multiple sclerosis
     Dosage: 1/2 DOSE FOR 1ST INFUSION; 1/2 DOSE FOR 2ND INFUSION
     Route: 042
     Dates: start: 20201020, end: 202011
  2. OCREVUS [Suspect]
     Active Substance: OCRELIZUMAB
     Route: 042
     Dates: start: 202103
  3. DITROPAN XL [Concomitant]
     Active Substance: OXYBUTYNIN CHLORIDE
     Indication: Hypertonic bladder
     Route: 048
     Dates: start: 20220210

REACTIONS (3)
  - Disease progression [Unknown]
  - Multiple sclerosis [Unknown]
  - Drug ineffective [Unknown]
